FAERS Safety Report 4773244-7 (Version None)
Quarter: 2005Q3

REPORT INFORMATION
  Report Type: 
  Country: None (occurrence: None)
  Receive Date: 20050916
  Receipt Date: 20050909
  Transmission Date: 20060218
  Serious: Yes (Hospitalization)
  Sender: FDA-Public Use
  Company Number: KII-2005-0018565

PATIENT
  Age: 23 Month
  Sex: Male

DRUGS (1)
  1. MORPHINE SULFATE [Suspect]
     Indication: ACCIDENTAL EXPOSURE
     Dosage: SEE TEXT, ORAL
     Route: 048
     Dates: start: 20050820

REACTIONS (6)
  - ACCIDENTAL DRUG INTAKE BY CHILD [None]
  - ACCIDENTAL EXPOSURE [None]
  - HYPOTONIA [None]
  - MIOSIS [None]
  - PRURITUS [None]
  - SOMNOLENCE [None]
